FAERS Safety Report 5142748-X (Version None)
Quarter: 2006Q4

REPORT INFORMATION
  Report Type: 
  Country: None (occurrence: None)
  Receive Date: 20061102
  Receipt Date: 20061025
  Transmission Date: 20070319
  Serious: Yes (Other)
  Sender: FDA-Public Use
  Company Number: 2006UW20681

PATIENT
  Age: 36 Year
  Sex: Female

DRUGS (5)
  1. SEROQUEL [Suspect]
     Route: 048
  2. PAXIL [Suspect]
     Route: 048
  3. ADVIL [Concomitant]
  4. TYLENOL 1 FORTE [Concomitant]
  5. TYELNOL NO. 3 [Concomitant]

REACTIONS (1)
  - CONTUSION [None]
